FAERS Safety Report 6187871-6 (Version None)
Quarter: 2009Q2

REPORT INFORMATION
  Report Type: 
  Country: None (occurrence: None)
  Receive Date: 20090513
  Receipt Date: 20090430
  Transmission Date: 20091009
  Serious: Yes (Life-Threatening, Other)
  Sender: FDA-Public Use
  Company Number: DE-RANBAXY-2009RR-24003

PATIENT
  Age: 70 Year
  Sex: Female

DRUGS (5)
  1. METFORMIN HCL [Suspect]
     Dosage: 2.5 DF, UNK
  2. XELEVIA [Suspect]
     Dosage: 100 MG, QD
  3. BISOPROLOL 5 [Concomitant]
     Dosage: 0.5 DF, QD
  4. BROMAZEPAM [Concomitant]
     Dosage: 0.5 DF, QD
  5. CITALOPRAM 10 [Concomitant]
     Dosage: 1 DF, QD

REACTIONS (3)
  - DEHYDRATION [None]
  - LACTIC ACIDOSIS [None]
  - RENAL FAILURE ACUTE [None]
